FAERS Safety Report 10040659 (Version 11)
Quarter: 2017Q2

REPORT INFORMATION
  Report Type: Report from Study
  Country: IT (occurrence: IT)
  Receive Date: 20140327
  Receipt Date: 20170608
  Transmission Date: 20170829
  Serious: Yes (Hospitalization)
  Sender: FDA-Public Use
  Company Number: IT-ROCHE-1348661

PATIENT
  Age: 66 Year
  Sex: Male
  Weight: 87 kg

DRUGS (43)
  1. BISOPROLOL [Concomitant]
     Active Substance: BISOPROLOL
     Route: 048
     Dates: start: 2011
  2. ALLOPURINOL. [Concomitant]
     Active Substance: ALLOPURINOL
     Indication: PROPHYLAXIS
     Route: 048
     Dates: start: 20140128
  3. HEPARIN SODIUM. [Concomitant]
     Active Substance: HEPARIN SODIUM
     Dosage: 1 VIAL
     Route: 058
     Dates: start: 20140212, end: 20140807
  4. PARACETAMOL [Concomitant]
     Active Substance: ACETAMINOPHEN
     Route: 042
     Dates: start: 20140207, end: 20140207
  5. PARACETAMOL [Concomitant]
     Active Substance: ACETAMINOPHEN
     Route: 048
     Dates: start: 20140204, end: 20140204
  6. OBINUTUZUMAB [Suspect]
     Active Substance: OBINUTUZUMAB
     Dosage: C5D1
     Route: 042
     Dates: start: 20140526, end: 20140526
  7. MYCOSTATIN [Concomitant]
     Active Substance: NYSTATIN
     Route: 048
     Dates: start: 20140211, end: 20140227
  8. TRAMADOL HYDROCHLORIDE. [Concomitant]
     Active Substance: TRAMADOL HYDROCHLORIDE
     Route: 048
     Dates: start: 20140203, end: 20140203
  9. OBINUTUZUMAB [Suspect]
     Active Substance: OBINUTUZUMAB
     Indication: CHRONIC LYMPHOCYTIC LEUKAEMIA
     Route: 042
     Dates: start: 20140203, end: 20140203
  10. BACTRIM [Concomitant]
     Active Substance: SULFAMETHOXAZOLE\TRIMETHOPRIM
     Route: 048
     Dates: start: 20140217, end: 20140716
  11. SODIUM CHLORIDE. [Concomitant]
     Active Substance: SODIUM CHLORIDE
     Dosage: AFTER EACH GA-101 AND CHEMOTHERAPY ADMINISTRATION
     Route: 042
     Dates: start: 20140203, end: 20140528
  12. SENNA LEAF [Concomitant]
     Active Substance: SENNA LEAF
     Route: 048
     Dates: start: 20140211, end: 20140211
  13. OBINUTUZUMAB [Suspect]
     Active Substance: OBINUTUZUMAB
     Dosage: C1D2
     Route: 042
     Dates: start: 20140204, end: 20140204
  14. FLUDARABINE [Suspect]
     Active Substance: FLUDARABINE PHOSPHATE
     Indication: CHRONIC LYMPHOCYTIC LEUKAEMIA
     Dosage: THE PATIENT ALSO RECEIVED FURTHER CYCLES ON 03/FEB/2014, 04/FEB/2014, 05/FEB/2014, 03/MAR/2014, 04/M
     Route: 042
     Dates: start: 20140203
  15. LANOXIN [Concomitant]
     Active Substance: DIGOXIN
     Route: 065
     Dates: start: 20110101
  16. COUMADIN [Concomitant]
     Active Substance: WARFARIN SODIUM
     Route: 048
     Dates: start: 2011, end: 20140204
  17. BISOPROLOL [Concomitant]
     Active Substance: BISOPROLOL
     Route: 048
  18. ONDANSETRON [Concomitant]
     Active Substance: ONDANSETRON
     Dosage: BEFORE EACH CHEMOTHERAPY ADMINISTRATION
     Route: 042
     Dates: start: 20140203, end: 20140528
  19. CEFIXIME. [Concomitant]
     Active Substance: CEFIXIME
     Route: 048
     Dates: start: 20140212, end: 20140217
  20. METHYLPREDNISOLONE. [Concomitant]
     Active Substance: METHYLPREDNISOLONE
     Route: 065
     Dates: start: 20140204, end: 20140204
  21. FENTANYL. [Concomitant]
     Active Substance: FENTANYL
     Route: 048
  22. LACTULOSE. [Concomitant]
     Active Substance: LACTULOSE
     Dosage: 1 SACHET
     Route: 048
     Dates: start: 20140208, end: 20140208
  23. SODIUM PHOSPHATE [Concomitant]
     Active Substance: SODIUM PHOSPHATE
     Dosage: 1 BARIUM
     Route: 054
     Dates: start: 20140210, end: 20140210
  24. OBINUTUZUMAB [Suspect]
     Active Substance: OBINUTUZUMAB
     Dosage: C2D1
     Route: 042
     Dates: start: 20140303, end: 20140303
  25. OBINUTUZUMAB [Suspect]
     Active Substance: OBINUTUZUMAB
     Dosage: C4D1
     Route: 042
     Dates: start: 20140428, end: 20140428
  26. LANOXIN [Concomitant]
     Active Substance: DIGOXIN
     Route: 048
     Dates: start: 2011
  27. ALLOPURINOL. [Concomitant]
     Active Substance: ALLOPURINOL
     Route: 048
     Dates: start: 20140228, end: 20140410
  28. ALLOPURINOL. [Concomitant]
     Active Substance: ALLOPURINOL
     Route: 048
     Dates: start: 20140411, end: 20140522
  29. ALLOPURINOL. [Concomitant]
     Active Substance: ALLOPURINOL
     Route: 048
     Dates: start: 20140127, end: 20140227
  30. CHLORPHENAMINE [Concomitant]
     Active Substance: CHLORPHENIRAMINE MALEATE
     Dosage: BEFORE EACH GA-101 ADMINISTRATION
     Route: 042
     Dates: start: 20140203, end: 20140526
  31. CYCLOPHOSPHAMIDE. [Suspect]
     Active Substance: CYCLOPHOSPHAMIDE
     Indication: CHRONIC LYMPHOCYTIC LEUKAEMIA
     Dosage: THE PATIENT ALSO RECEIVED FURTHER CYCLES ON 03/FEB/2014, 04/FEB/2014, 05/FEB/2014, 03/MAR/2014, 04/M
     Route: 042
     Dates: start: 20140203
  32. DIGOXIN. [Concomitant]
     Active Substance: DIGOXIN
     Route: 048
  33. POLYGELINE [Concomitant]
     Active Substance: POLYGELINE
     Dosage: 1 VIAL
     Route: 042
     Dates: start: 20140203, end: 20140203
  34. OBINUTUZUMAB [Suspect]
     Active Substance: OBINUTUZUMAB
     Dosage: C3D1
     Route: 042
     Dates: start: 20140331, end: 20140331
  35. METOCLOPRAMIDE HYDROCHLORIDE. [Concomitant]
     Active Substance: METOCLOPRAMIDE HYDROCHLORIDE
     Dosage: 1 DOSE VIAL
     Route: 042
     Dates: start: 20140203, end: 20140203
  36. PARACETAMOL [Concomitant]
     Active Substance: ACETAMINOPHEN
     Route: 048
     Dates: start: 20140206, end: 20140206
  37. CHLORHEXIDINE [Concomitant]
     Active Substance: CHLORHEXIDINE
     Dosage: 1 RINSE
     Route: 048
     Dates: start: 20140212, end: 20140215
  38. HYDROCORTISONE. [Concomitant]
     Active Substance: HYDROCORTISONE
     Route: 042
     Dates: start: 20140203, end: 20140203
  39. WARFARIN SODIUM. [Concomitant]
     Active Substance: WARFARIN SODIUM
     Route: 048
     Dates: end: 20140203
  40. MYCOSTATIN [Concomitant]
     Active Substance: NYSTATIN
     Route: 042
     Dates: start: 20140207, end: 20140211
  41. ACYCLOVIR. [Concomitant]
     Active Substance: ACYCLOVIR
     Route: 048
     Dates: start: 20140207
  42. PARACETAMOL [Concomitant]
     Active Substance: ACETAMINOPHEN
     Dosage: BEFORE EACH GA-101 ADMINISTRATION
     Route: 048
     Dates: start: 20140203, end: 20140526
  43. SELEPARINA [Concomitant]
     Active Substance: NADROPARIN CALCIUM
     Route: 058
     Dates: start: 20140212, end: 20140729

REACTIONS (1)
  - Febrile neutropenia [Recovered/Resolved]

NARRATIVE: CASE EVENT DATE: 20140206
